FAERS Safety Report 14472270 (Version 1)
Quarter: 2018Q1

REPORT INFORMATION
  Report Type: Spontaneous
  Country: US (occurrence: US)
  Receive Date: 20180131
  Receipt Date: 20180131
  Transmission Date: 20180509
  Serious: Yes (Other)
  Sender: FDA-Public Use
  Company Number: US-MYLANLABS-2018M1005512

PATIENT
  Sex: Male

DRUGS (2)
  1. EPIPEN [Suspect]
     Active Substance: EPINEPHRINE
     Indication: FOOD ALLERGY
     Dosage: 1 DF, UNK
     Route: 030
  2. EPIPEN [Suspect]
     Active Substance: EPINEPHRINE
     Dosage: UNK

REACTIONS (1)
  - Device failure [Recovered/Resolved]
